FAERS Safety Report 8691895 (Version 2)
Quarter: 2012Q4

REPORT INFORMATION
  Report Type: 
  Country: US (occurrence: US)
  Receive Date: 20120730
  Receipt Date: 20120829
  Transmission Date: 20130627
  Serious: Yes (Other)
  Sender: FDA-Public Use
  Company Number: US-PFIZER INC-2012094969

PATIENT
  Age: 51 Year
  Sex: Female
  Weight: 61.22 kg

DRUGS (2)
  1. LYRICA [Suspect]
     Indication: FIBROMYALGIA
     Dosage: UNK, 2x/day
     Route: 048
     Dates: end: 2011
  2. LYRICA [Suspect]
     Indication: CONVULSION

REACTIONS (2)
  - Clear cell endometrial carcinoma [Unknown]
  - Postmenopausal haemorrhage [Unknown]
